FAERS Safety Report 20907531 (Version 2)
Quarter: 2022Q2

REPORT INFORMATION
  Report Type: Spontaneous
  Country: RO (occurrence: RO)
  Receive Date: 20220602
  Receipt Date: 20220607
  Transmission Date: 20220721
  Serious: Yes (Other)
  Sender: FDA-Public Use
  Company Number: RO-Zentiva-2022-ZT-004269

PATIENT
  Age: 51 Year
  Sex: Male

DRUGS (4)
  1. IMATINIB [Suspect]
     Active Substance: IMATINIB
     Indication: Dermatofibrosarcoma protuberans metastatic
     Dosage: 800 MILLIGRAM, QD
  2. IMATINIB [Suspect]
     Active Substance: IMATINIB
     Indication: Dermatofibrosarcoma protuberans
  3. PACLITAXEL [Concomitant]
     Active Substance: PACLITAXEL
     Indication: Lymphadenopathy mediastinal
     Dosage: 8 DOSAGE FORM (8 DOSES OF CHEMOTHERAPY WITH PACLITAXEL AND CARBOPLATIN)
  4. CARBOPLATIN [Concomitant]
     Active Substance: CARBOPLATIN
     Indication: Lymphadenopathy mediastinal
     Dosage: 8 DOSAGE FORM (8 DOSES OF CHEMOTHERAPY WITH PACLITAXEL AND CARBOPLATIN)

REACTIONS (2)
  - Dysplastic naevus [Unknown]
  - Pigmentation disorder [Not Recovered/Not Resolved]
